FAERS Safety Report 15688978 (Version 1)
Quarter: 2018Q4

REPORT INFORMATION
  Report Type: Spontaneous
  Country: US (occurrence: US)
  Receive Date: 20181205
  Receipt Date: 20181205
  Transmission Date: 20190205
  Serious: No
  Sender: FDA-Public Use
  Company Number: US-ASTRAZENECA-2018SF51798

PATIENT
  Sex: Female

DRUGS (4)
  1. SPIRIVA [Concomitant]
     Active Substance: TIOTROPIUM BROMIDE MONOHYDRATE
     Indication: ASTHMA
     Dosage: REGULARLY AS PRESCRIBED
     Route: 065
  2. FASENRA [Suspect]
     Active Substance: BENRALIZUMAB
     Indication: ASTHMA
     Dosage: 30 MG EVERY 4 WEEKS FOR THE FIRST 3 DOSES AND THEN TO EVERY 8 WEEKS
     Route: 058
     Dates: start: 201803
  3. QUVAR [Concomitant]
     Indication: ASTHMA
     Dosage: REGULARLY AS PRESCRIBED
     Route: 065
  4. PREDNISONE. [Concomitant]
     Active Substance: PREDNISONE

REACTIONS (4)
  - Wheezing [Unknown]
  - Chest discomfort [Unknown]
  - Drug effect incomplete [Unknown]
  - Cough [Unknown]
